FAERS Safety Report 16862265 (Version 1)
Quarter: 2019Q3

REPORT INFORMATION
  Report Type: Spontaneous
  Country: US (occurrence: US)
  Receive Date: 20190927
  Receipt Date: 20190927
  Transmission Date: 20191005
  Serious: Yes (Other)
  Sender: FDA-Public Use
  Company Number: US-AUROBINDO-AUR-APL-2019-062758

PATIENT
  Age: 56 Year
  Sex: Male

DRUGS (1)
  1. PHENYTOIN. [Suspect]
     Active Substance: PHENYTOIN
     Indication: GENERALISED TONIC-CLONIC SEIZURE
     Dosage: UNK
     Route: 065

REACTIONS (8)
  - Eosinophilic pneumonia [Unknown]
  - Dyspnoea [Unknown]
  - Eosinophil count increased [Recovered/Resolved]
  - Bronchial wall thickening [Unknown]
  - Cough [Unknown]
  - Pleural effusion [Unknown]
  - Pleurisy [Unknown]
  - Wheezing [Unknown]
